FAERS Safety Report 9144173 (Version 1)
Quarter: 2013Q1

REPORT INFORMATION
  Report Type: Spontaneous
  Country: GB (occurrence: GB)
  Receive Date: 20130306
  Receipt Date: 20130306
  Transmission Date: 20140127
  Serious: Yes (Hospitalization)
  Sender: FDA-Public Use
  Company Number: GB-BAYER-2013-028539

PATIENT
  Age: 27 Year
  Sex: Female
  Weight: 47 kg

DRUGS (5)
  1. NAPROXEN SODIUM ({= 220 MG) [Suspect]
     Indication: ANALGESIC THERAPY
     Dosage: UNK
     Route: 048
     Dates: start: 20130115, end: 20130220
  2. DICLOFENAC [Suspect]
     Indication: ANALGESIC THERAPY
     Dosage: 100 MG, QD
     Route: 054
     Dates: start: 20130128, end: 20130220
  3. CIPROFLOXACIN [Concomitant]
  4. PARACETAMOL [Concomitant]
  5. TRAMADOL [Concomitant]

REACTIONS (3)
  - Gastrointestinal haemorrhage [Recovering/Resolving]
  - Haematemesis [Unknown]
  - Haemoglobin decreased [Unknown]
